FAERS Safety Report 8886792 (Version 3)
Quarter: 2013Q1

REPORT INFORMATION
  Report Type: Report from Study
  Country: JP (occurrence: JP)
  Receive Date: 20121105
  Receipt Date: 20130110
  Transmission Date: 20140127
  Serious: Yes (Hospitalization, Other)
  Sender: FDA-Public Use
  Company Number: JP-VERTEX PHARMACEUTICAL INC.-AE-2012-011246

PATIENT
  Age: 52 Year
  Sex: Male

DRUGS (8)
  1. VX-950 (TELAPREVIR) [Suspect]
     Indication: CHRONIC HEPATITIS C
     Dosage: 2250 MG, QD
     Route: 048
     Dates: start: 20120501, end: 20120615
  2. VX-950 (TELAPREVIR) [Suspect]
     Dosage: 1500 MG, QD
     Route: 048
     Dates: start: 20120626, end: 20120723
  3. REBETOL [Suspect]
     Indication: CHRONIC HEPATITIS C
     Dosage: 800 MG, QD
     Route: 048
     Dates: start: 20120501, end: 20120615
  4. REBETOL [Suspect]
     Dosage: 800 MG, QD
     Route: 048
     Dates: start: 20120626, end: 20121023
  5. PEGINTERFERON ALFA-2B [Suspect]
     Indication: CHRONIC HEPATITIS C
     Dosage: 1.5 ?G/KG, QW
     Route: 058
     Dates: start: 20120501, end: 20120612
  6. PEGINTERFERON ALFA-2B [Suspect]
     Dosage: 1.5 ?G/KG,QW
     Route: 058
     Dates: start: 20120626, end: 20121023
  7. RIBALL [Suspect]
     Indication: ADVERSE EVENT
     Dosage: 200 MG, QD
     Route: 048
     Dates: start: 20120515, end: 20120611
  8. TALION                             /01587402/ [Concomitant]
     Dosage: 20 MG, QD
     Route: 048
     Dates: end: 20121023

REACTIONS (2)
  - Diarrhoea [Recovered/Resolved]
  - Injection site ulcer [Recovered/Resolved]
